FAERS Safety Report 7497005-3 (Version None)
Quarter: 2011Q2

REPORT INFORMATION
  Report Type: 
  Country: None (occurrence: None)
  Receive Date: 20110523
  Receipt Date: 20110509
  Transmission Date: 20111010
  Serious: Yes (Hospitalization)
  Sender: FDA-Public Use
  Company Number: US-JNJFOC-20110301095

PATIENT
  Sex: Male

DRUGS (7)
  1. BENADRYL [Concomitant]
     Indication: PREMEDICATION
  2. ACETAMINOPHEN [Concomitant]
     Indication: PREMEDICATION
  3. REMICADE [Suspect]
     Indication: PSORIASIS
     Route: 042
     Dates: start: 20110214
  4. REMICADE [Suspect]
     Route: 042
     Dates: start: 20090501, end: 20100501
  5. TRIAMCINOLONE [Concomitant]
     Route: 065
  6. ENALAPRIL MALEATE [Concomitant]
     Indication: HYPERTENSION
  7. DOVONEX [Concomitant]
     Indication: PSORIASIS
     Route: 061

REACTIONS (13)
  - PYREXIA [None]
  - LEUKOPENIA [None]
  - INTERNATIONAL NORMALISED RATIO INCREASED [None]
  - MYALGIA [None]
  - HAEMOGLOBIN DECREASED [None]
  - BLOOD THYROID STIMULATING HORMONE INCREASED [None]
  - ARTHRALGIA [None]
  - C-REACTIVE PROTEIN INCREASED [None]
  - WHITE BLOOD CELL COUNT INCREASED [None]
  - HYPOKINESIA [None]
  - PROTEIN URINE PRESENT [None]
  - PAIN [None]
  - TACHYCARDIA [None]
